FAERS Safety Report 6518146-0 (Version None)
Quarter: 2009Q4

REPORT INFORMATION
  Report Type: 
  Country: None (occurrence: None)
  Receive Date: 20091223
  Receipt Date: 20091223
  Transmission Date: 20100525
  Serious: Yes (Hospitalization)
  Sender: FDA-Public Use
  Company Number: None

PATIENT
  Sex: Female
  Weight: 75.6 kg

DRUGS (2)
  1. MULTAQ [Suspect]
     Indication: ATRIAL FIBRILLATION
     Dosage: 400 MG BID PO
     Route: 048
     Dates: start: 20091004, end: 20091214
  2. MULTAQ [Suspect]
     Indication: DRUG HYPERSENSITIVITY
     Dosage: 400 MG BID PO
     Route: 048
     Dates: start: 20091004, end: 20091214

REACTIONS (1)
  - CONVULSION [None]
